FAERS Safety Report 6304198-X (Version None)
Quarter: 2009Q3

REPORT INFORMATION
  Report Type: 
  Country: None (occurrence: None)
  Receive Date: 20090811
  Receipt Date: 20090805
  Transmission Date: 20100115
  Serious: Yes (Other)
  Sender: FDA-Public Use
  Company Number: US-ASTRAZENECA-2007UW13877

PATIENT
  Age: 15068 Day
  Sex: Female
  Weight: 56.7 kg

DRUGS (7)
  1. SEROQUEL [Suspect]
     Indication: SLEEP DISORDER
     Dosage: 25 MG - 100 MG
     Route: 048
     Dates: start: 20020101, end: 20060201
  2. SEROQUEL [Suspect]
     Indication: DEPRESSION
     Dosage: 25 MG - 100 MG
     Route: 048
     Dates: start: 20020101, end: 20060201
  3. SEROQUEL [Suspect]
     Indication: ATTENTION DEFICIT/HYPERACTIVITY DISORDER
     Dosage: 25 MG - 100 MG
     Route: 048
     Dates: start: 20020101, end: 20060201
  4. ABILIFY [Concomitant]
     Dates: start: 20060101
  5. XANAX [Concomitant]
     Dates: start: 19930101
  6. KLONOPIN [Concomitant]
     Dates: start: 19930101
  7. LEXAPRO [Concomitant]

REACTIONS (4)
  - DIABETES MELLITUS [None]
  - NEUROPATHY PERIPHERAL [None]
  - PANCREATITIS CHRONIC [None]
  - REPRODUCTIVE TRACT DISORDER [None]
